FAERS Safety Report 6762278-9 (Version None)
Quarter: 2010Q2

REPORT INFORMATION
  Report Type: 
  Country: None (occurrence: None)
  Receive Date: 20100609
  Receipt Date: 20100528
  Transmission Date: 20101027
  Serious: Yes (Other)
  Sender: FDA-Public Use
  Company Number: US-SANOFI-AVENTIS-2010SA032142

PATIENT
  Age: 47 Year
  Sex: Female

DRUGS (2)
  1. PLAVIX [Suspect]
     Route: 048
     Dates: start: 19950101
  2. ALL OTHER THERAPEUTIC PRODUCTS [Concomitant]

REACTIONS (9)
  - ANAL FISTULA [None]
  - BENIGN NEOPLASM OF THYROID GLAND [None]
  - GALLBLADDER DISORDER [None]
  - HAEMORRHOIDS [None]
  - MALAISE [None]
  - MEDICATION RESIDUE [None]
  - NAUSEA [None]
  - PAIN IN EXTREMITY [None]
  - ROTATOR CUFF SYNDROME [None]
